FAERS Safety Report 17771664 (Version 1)
Quarter: 2020Q2

REPORT INFORMATION
  Report Type: Spontaneous
  Country: US (occurrence: US)
  Receive Date: 20200512
  Receipt Date: 20200512
  Transmission Date: 20200714
  Serious: No
  Sender: FDA-Public Use
  Company Number: US-MAYNE PHARMA-2019MYN000436

PATIENT

DRUGS (1)
  1. LIOTHYRONINE [Suspect]
     Active Substance: LIOTHYRONINE
     Indication: HYPOTHYROIDISM
     Dosage: 20 MCG, BID
     Route: 048
     Dates: start: 20190506, end: 20190508

REACTIONS (3)
  - Product substitution issue [Unknown]
  - Palpitations [Recovered/Resolved]
  - Product measured potency issue [Unknown]

NARRATIVE: CASE EVENT DATE: 20190506
